FAERS Safety Report 9466511 (Version 1)
Quarter: 2013Q3

REPORT INFORMATION
  Report Type: Spontaneous
  Country: FR (occurrence: FR)
  Receive Date: 20130820
  Receipt Date: 20130820
  Transmission Date: 20140515
  Serious: Yes (Hospitalization)
  Sender: FDA-Public Use
  Company Number: FR-ELI_LILLY_AND_COMPANY-FR201308003930

PATIENT
  Age: 62 Year
  Sex: Male

DRUGS (7)
  1. ALIMTA [Suspect]
     Dosage: 825 MG, CYCLICAL
     Route: 042
     Dates: start: 20120924, end: 20121221
  2. ALIMTA [Suspect]
     Dosage: 675 MG, CYCLICAL
     Route: 042
     Dates: start: 20130221, end: 20130404
  3. CISPLATIN [Concomitant]
     Dosage: 125 MG, CYCLICAL
     Dates: start: 20120924, end: 20121221
  4. LAROXYL [Concomitant]
     Dosage: 3 GTT, BID
  5. FORLAX [Concomitant]
     Dosage: 1 DF, QD
  6. LAMALINE                           /01708901/ [Concomitant]
  7. PARACETAMOL [Concomitant]

REACTIONS (13)
  - General physical health deterioration [Unknown]
  - Pancytopenia [Recovered/Resolved]
  - Decreased appetite [Unknown]
  - Fatigue [Unknown]
  - Constipation [Unknown]
  - Skin ulcer [Unknown]
  - Fungal infection [Unknown]
  - Dysgeusia [Unknown]
  - Dyspnoea [Unknown]
  - Bone marrow failure [Unknown]
  - Rectal haemorrhage [Unknown]
  - Off label use [Unknown]
  - Weight decreased [Unknown]
